FAERS Safety Report 21690986 (Version 1)
Quarter: 2022Q4

REPORT INFORMATION
  Report Type: Report from Study
  Country: US (occurrence: US)
  Receive Date: 20221207
  Receipt Date: 20221207
  Transmission Date: 20230113
  Serious: No
  Sender: FDA-Public Use
  Company Number: US-ABBVIE-4183853

PATIENT
  Sex: Female

DRUGS (27)
  1. RINVOQ [Suspect]
     Active Substance: UPADACITINIB
     Indication: Psoriatic arthropathy
     Route: 048
     Dates: start: 20220908
  2. ROPINIROLE TAB 1MG [Concomitant]
     Indication: Product used for unknown indication
  3. PREGABALIN CAP 25MG [Concomitant]
     Indication: Product used for unknown indication
  4. LEFLUNOMIDE [Concomitant]
     Active Substance: LEFLUNOMIDE
     Indication: Product used for unknown indication
  5. ALBUTEROL AER HFA [Concomitant]
     Indication: Product used for unknown indication
  6. COSENTYX [Concomitant]
     Active Substance: SECUKINUMAB
     Indication: Product used for unknown indication
     Dosage: (2=1 BX)
  7. ZALEPLON CAP 10MG [Concomitant]
     Indication: Product used for unknown indication
  8. MONTELUKAST [Concomitant]
     Active Substance: MONTELUKAST SODIUM
     Indication: Product used for unknown indication
  9. FOLIC ACID TAB 1000MCG [Concomitant]
     Indication: Product used for unknown indication
  10. DIAZEPAM TAB 10MG [Concomitant]
     Indication: Product used for unknown indication
  11. BACLOFEN TAB 20MG [Concomitant]
     Indication: Product used for unknown indication
  12. LIDOCAINE [Concomitant]
     Active Substance: LIDOCAINE
     Indication: Product used for unknown indication
     Dosage: SOL 2% VISC
  13. COSENTYX [Concomitant]
     Active Substance: SECUKINUMAB
     Indication: Product used for unknown indication
     Dosage: PEN INJ 300DOSE
  14. PREGABALIN CAP 50MG [Concomitant]
     Indication: Product used for unknown indication
  15. HYDROCO/APAP TAB [Concomitant]
     Indication: Product used for unknown indication
     Dosage: 5-325MG
  16. PREDNISONE TAB 50MG [Concomitant]
     Indication: Product used for unknown indication
  17. LEFLUNOMIDE [Concomitant]
     Active Substance: LEFLUNOMIDE
     Indication: Product used for unknown indication
  18. PNEUMOVAX 23 INJ [Concomitant]
     Indication: Product used for unknown indication
     Dosage: 25/0.5
  19. DIPHEN/ATROP TAB 2.5MG [Concomitant]
     Indication: Product used for unknown indication
  20. PRAVASTATIN TAB 80MG [Concomitant]
     Indication: Product used for unknown indication
  21. AMLODIPINE TAB 5MG [Concomitant]
     Indication: Product used for unknown indication
  22. CARVEDILOL TAB 25MG [Concomitant]
     Indication: Product used for unknown indication
  23. ONDANSETRON TAB 8MG ODT [Concomitant]
     Indication: Product used for unknown indication
  24. CLOBETASOL SOL 0.05% [Concomitant]
     Indication: Product used for unknown indication
  25. ROPINIROLE TAB 0.25MG [Concomitant]
     Indication: Product used for unknown indication
  26. AMITRIPTYLIN TAB 25MG [Concomitant]
     Indication: Product used for unknown indication
  27. CARVEDILOL TAB 12.5MG [Concomitant]
     Indication: Product used for unknown indication

REACTIONS (4)
  - Skin exfoliation [Unknown]
  - Onychoclasis [Unknown]
  - Skin hypertrophy [Unknown]
  - Nail disorder [Unknown]

NARRATIVE: CASE EVENT DATE: 20220101
